FAERS Safety Report 10073655 (Version 2)
Quarter: 2014Q2

REPORT INFORMATION
  Report Type: Spontaneous
  Country: ES (occurrence: ES)
  Receive Date: 20140411
  Receipt Date: 20140424
  Transmission Date: 20141212
  Serious: Yes (Other)
  Sender: FDA-Public Use
  Company Number: PHHY2014ES041703

PATIENT
  Age: 11 Year
  Sex: Female

DRUGS (1)
  1. MONTELUKAST SODIUM [Suspect]
     Indication: ASTHMA EXERCISE INDUCED

REACTIONS (4)
  - Alice in wonderland syndrome [Recovered/Resolved]
  - Altered visual depth perception [Recovered/Resolved]
  - Dysmetropsia [Recovered/Resolved]
  - Hallucination, visual [Recovered/Resolved]
